FAERS Safety Report 4893221-5 (Version None)
Quarter: 2006Q1

REPORT INFORMATION
  Report Type: 
  Country: None (occurrence: None)
  Receive Date: 20060127
  Receipt Date: 20060112
  Transmission Date: 20060701
  Serious: Yes (Death)
  Sender: FDA-Public Use
  Company Number: TR-BOEHRINGER INGELHEIM PHARMACEUTICALS, INC.-2006-DE-00179GD

PATIENT
  Age: 43 Year
  Sex: Male

DRUGS (5)
  1. DIPYRIDAMOLE [Suspect]
     Indication: MALIGNANT ATROPHIC PAPULOSIS
  2. PENTOXIFYLLINE [Suspect]
     Indication: MALIGNANT ATROPHIC PAPULOSIS
  3. SYSTEMIC BROAD-SPECTRUM ANTIBIOTICS [Suspect]
     Indication: MALIGNANT ATROPHIC PAPULOSIS
  4. ERYTHROCYTE SUSPENSION [Suspect]
     Indication: MALIGNANT ATROPHIC PAPULOSIS
  5. IMMUNOGLOBULIN [Suspect]
     Indication: MALIGNANT ATROPHIC PAPULOSIS
     Route: 042

REACTIONS (7)
  - DRUG INEFFECTIVE [None]
  - GASTROINTESTINAL HAEMORRHAGE [None]
  - HAEMOPTYSIS [None]
  - RESTRICTIVE PULMONARY DISEASE [None]
  - SEPSIS [None]
  - STOMACH DISCOMFORT [None]
  - UPPER GASTROINTESTINAL HAEMORRHAGE [None]
